FAERS Safety Report 8339261-5 (Version None)
Quarter: 2012Q2

REPORT INFORMATION
  Report Type: 
  Country: None (occurrence: None)
  Receive Date: 20120507
  Receipt Date: 20120427
  Transmission Date: 20120825
  Serious: Yes (Other)
  Sender: FDA-Public Use
  Company Number: US-BAYER-2012-019731

PATIENT
  Age: 68 Year
  Sex: Female

DRUGS (24)
  1. NITROFURANTOIN [Concomitant]
     Dosage: 2 AS NEEDED
  2. CALCIUM [Concomitant]
     Dosage: 1 DF, QD
  3. VITAMIN E [Concomitant]
     Dosage: 400 U, QD
  4. FISH OIL [Concomitant]
     Dosage: 4 DF, QD
  5. BETASERON [Suspect]
     Indication: MULTIPLE SCLEROSIS
     Dosage: UNK
     Dates: start: 19950410, end: 20070424
  6. HYDROCHLOROTHIAZIDE [Concomitant]
     Indication: HYPERTENSION
     Dosage: 25 MG, QD
     Route: 048
  7. NIFEDIPINE [Concomitant]
     Dosage: 30 MG, QD
  8. LUTEIN [Concomitant]
  9. VITAMIN E [Concomitant]
     Dosage: 1000 IU, BID
     Route: 048
  10. AMANTADINE HCL [Concomitant]
     Dosage: 100 MG, BID
  11. ASPIRIN [Concomitant]
     Dosage: 81 MG, QD
     Route: 048
  12. BILBERRY [Concomitant]
  13. VITAMIN C [Concomitant]
     Dosage: 1 DF, QD
  14. VITAMIN D [Concomitant]
     Dosage: 2 DF, QD
  15. LISINOPRIL [Concomitant]
     Dosage: 10 MG, QID
  16. TYLENOL PM [Concomitant]
     Dosage: 1 DF, HS
     Route: 048
  17. GARLIC [Concomitant]
     Dosage: 100 MG, QID
  18. ATENOLOL [Concomitant]
     Dosage: 50 MG, BID
     Route: 048
  19. BETASERON [Suspect]
     Dosage: 1 DF, QOD
     Dates: start: 20070706, end: 20120220
  20. DITROPAN [Concomitant]
     Dosage: 5 MG, TID
     Route: 048
  21. BACLOFEN [Concomitant]
     Dosage: 10 MG, PRN
     Route: 048
  22. PREDNISONE TAB [Concomitant]
     Dosage: 10 MG, PRN
  23. CRANBERRY [Concomitant]
     Dosage: 1 DF, QD
  24. CINNAMON [Concomitant]
     Dosage: 2 DF, QD

REACTIONS (1)
  - EYE DISORDER [None]
